FAERS Safety Report 8052494-0 (Version None)
Quarter: 2012Q1

REPORT INFORMATION
  Report Type: 
  Country: None (occurrence: None)
  Receive Date: 20120118
  Receipt Date: 20120113
  Transmission Date: 20120608
  Serious: Yes (Other)
  Sender: FDA-Public Use
  Company Number: AU-PFIZER INC-2011137508

PATIENT
  Sex: Female

DRUGS (2)
  1. EFFEXOR XR [Suspect]
     Indication: MENOPAUSAL SYMPTOMS
  2. EFFEXOR XR [Suspect]
     Indication: HOT FLUSH
     Dosage: 75 MG, 1X/DAY
     Route: 048
     Dates: start: 20060101, end: 20110601

REACTIONS (8)
  - DISORIENTATION [None]
  - VERTIGO [None]
  - PANIC ATTACK [None]
  - PARAESTHESIA [None]
  - WITHDRAWAL SYNDROME [None]
  - DEPRESSION [None]
  - INSOMNIA [None]
  - EMOTIONAL DISTRESS [None]
